FAERS Safety Report 4407267-4 (Version None)
Quarter: 2004Q3

REPORT INFORMATION
  Report Type: 
  Country: None (occurrence: None)
  Receive Date: 20040721
  Receipt Date: 20040701
  Transmission Date: 20050211
  Serious: Yes (Other)
  Sender: FDA-Public Use
  Company Number: USA040771711

PATIENT
  Age: 81 Year
  Sex: Female

DRUGS (4)
  1. EVISTA [Suspect]
     Indication: OSTEOPOROSIS
     Dosage: 60 MG DAY
     Dates: start: 20030101
  2. NORVASC [Concomitant]
  3. TOPROL-XL [Concomitant]
  4. MAXZIDE [Concomitant]

REACTIONS (4)
  - CHOKING [None]
  - EYE DISORDER [None]
  - HOT FLUSH [None]
  - MUSCLE CRAMP [None]
